FAERS Safety Report 8206428-6 (Version None)
Quarter: 2012Q1

REPORT INFORMATION
  Report Type: 
  Country: None (occurrence: None)
  Receive Date: 20120313
  Receipt Date: 20120309
  Transmission Date: 20120608
  Serious: Yes (Death, Hospitalization)
  Sender: FDA-Public Use
  Company Number: PHHY2012BR020504

PATIENT
  Sex: Male
  Weight: 48 kg

DRUGS (1)
  1. EXELON [Suspect]
     Indication: DEMENTIA ALZHEIMER'S TYPE
     Dosage: 4.6 MG,DAILY (9 MG/5 CM2) (ONE PATCH A DAY)
     Route: 062

REACTIONS (3)
  - RESPIRATORY FAILURE [None]
  - URINARY INCONTINENCE [None]
  - LUNG INFECTION [None]
